FAERS Safety Report 5191201-6 (Version None)
Quarter: 2006Q4

REPORT INFORMATION
  Report Type: 
  Country: None (occurrence: None)
  Receive Date: 20061226
  Receipt Date: 20061121
  Transmission Date: 20070319
  Serious: Yes (Hospitalization)
  Sender: FDA-Public Use
  Company Number: JP-BRISTOL-MYERS SQUIBB COMPANY-13589106

PATIENT
  Age: 8 Decade
  Sex: Male

DRUGS (2)
  1. BRIPLATIN [Suspect]
     Indication: COLON CANCER
     Route: 041
     Dates: start: 20061013, end: 20061027
  2. TS-1 [Suspect]
     Indication: COLON CANCER
     Route: 048
     Dates: start: 20061006, end: 20061027

REACTIONS (2)
  - LYMPHOCYTE STIMULATION TEST POSITIVE [None]
  - PNEUMONITIS [None]
